FAERS Safety Report 6351139-5 (Version None)
Quarter: 2009Q3

REPORT INFORMATION
  Report Type: 
  Country: None (occurrence: None)
  Receive Date: 20090912
  Receipt Date: 20090622
  Transmission Date: 20100115
  Serious: No
  Sender: FDA-Public Use
  Company Number: US-ABBOTT-07P-163-0374267-00

PATIENT
  Sex: Male
  Weight: 131.5 kg

DRUGS (7)
  1. HUMIRA [Suspect]
     Indication: CROHN'S DISEASE
     Route: 058
     Dates: start: 20070702, end: 20070702
  2. HUMIRA [Suspect]
  3. LANTIN [Concomitant]
     Indication: DIABETES MELLITUS
     Route: 048
  4. METFORMIN HCL [Concomitant]
     Indication: DIABETES MELLITUS
     Route: 048
  5. MERCAPTOPURINE [Concomitant]
     Indication: CROHN'S DISEASE
     Route: 048
  6. LISINOPRIL [Concomitant]
     Indication: DRUG USE FOR UNKNOWN INDICATION
     Route: 048
  7. PANTOPRAZOLE SODIUM [Concomitant]
     Indication: ABDOMINAL DISCOMFORT
     Route: 048

REACTIONS (1)
  - INCORRECT DOSE ADMINISTERED [None]
